FAERS Safety Report 23751088 (Version 1)
Quarter: 2024Q2

REPORT INFORMATION
  Report Type: Spontaneous
  Country: IN (occurrence: IN)
  Receive Date: 20240417
  Receipt Date: 20240417
  Transmission Date: 20240715
  Serious: Yes (Other)
  Sender: FDA-Public Use
  Company Number: IN-GLANDPHARMA-IN-2024GLNLIT00004

PATIENT
  Age: 37 Year
  Sex: Male

DRUGS (1)
  1. METRONIDAZOLE [Suspect]
     Active Substance: METRONIDAZOLE
     Indication: Gastroenteritis
     Route: 065

REACTIONS (3)
  - Neurotoxicity [Recovered/Resolved]
  - Acute motor-sensory axonal neuropathy [Recovered/Resolved]
  - Product use in unapproved indication [Unknown]
